FAERS Safety Report 11247804 (Version 2)
Quarter: 2016Q2

REPORT INFORMATION
  Report Type: Spontaneous
  Country: JP (occurrence: JP)
  Receive Date: 20150708
  Receipt Date: 20160606
  Transmission Date: 20160815
  Serious: Yes (Death)
  Sender: FDA-Public Use
  Company Number: JP-TEVA-574655ISR

PATIENT
  Age: 38 Year
  Sex: Male
  Weight: 53 kg

DRUGS (12)
  1. E-FEN BUCCAL [Suspect]
     Active Substance: FENTANYL CITRATE
     Dosage: 800 MICROGRAM DAILY;
     Route: 002
     Dates: start: 20150324, end: 20150325
  2. FENTOS [Concomitant]
     Active Substance: FENTANYL
     Indication: CANCER PAIN
     Dosage: 16 MILLIGRAM DAILY;
     Route: 062
     Dates: start: 20140607
  3. VOGLIBOSE [Concomitant]
     Active Substance: VOGLIBOSE
     Indication: DIABETES MELLITUS
     Dosage: .9 MILLIGRAM DAILY;
     Route: 048
  4. OXINORM [Suspect]
     Active Substance: OXYCODONE HYDROCHLORIDE
     Indication: BREAKTHROUGH PAIN
     Route: 048
     Dates: start: 20120402
  5. LOXOPROFEN [Concomitant]
     Active Substance: LOXOPROFEN
     Indication: CANCER PAIN
     Dosage: 180 MILLIGRAM DAILY;
     Route: 048
     Dates: start: 2012
  6. E-FEN BUCCAL [Suspect]
     Active Substance: FENTANYL CITRATE
     Dosage: 1800 MICROGRAM DAILY;
     Route: 002
     Dates: start: 20150325, end: 20150325
  7. INTEBAN [Concomitant]
     Active Substance: INDOMETHACIN
     Indication: CANCER PAIN
     Route: 054
     Dates: start: 2012
  8. E-FEN BUCCAL [Suspect]
     Active Substance: FENTANYL CITRATE
     Dosage: DAILY DOSE: 200-400 MICROGRAM
     Route: 002
     Dates: start: 20150323, end: 20150324
  9. OXYCONTIN [Concomitant]
     Active Substance: OXYCODONE HYDROCHLORIDE
     Indication: CANCER PAIN
     Dosage: 160 MILLIGRAM DAILY;
     Route: 048
     Dates: start: 20120420
  10. E-FEN BUCCAL [Suspect]
     Active Substance: FENTANYL CITRATE
     Indication: BREAKTHROUGH PAIN
     Dosage: 300 MICROGRAM DAILY;
     Route: 002
     Dates: start: 20150323, end: 20150323
  11. LYRICA [Concomitant]
     Active Substance: PREGABALIN
     Indication: CANCER PAIN
     Dosage: 600 MILLIGRAM DAILY;
     Route: 048
  12. PREDONINE [Concomitant]
     Active Substance: PREDNISOLONE\PREDNISOLONE ACETATE\PREDNISOLONE SODIUM SUCCINATE
     Indication: CANCER PAIN
     Dosage: 5 MILLIGRAM DAILY;
     Route: 048

REACTIONS (2)
  - Somnolence [Recovering/Resolving]
  - Malignant neoplasm of thymus [Fatal]

NARRATIVE: CASE EVENT DATE: 20150326
